FAERS Safety Report 6589201-4 (Version None)
Quarter: 2010Q1

REPORT INFORMATION
  Report Type: 
  Country: None (occurrence: None)
  Receive Date: 20100212
  Receipt Date: 20100127
  Transmission Date: 20100710
  Serious: Yes (Other)
  Sender: FDA-Public Use
  Company Number: 060003J10CAN

PATIENT
  Age: 22 Year
  Sex: Female

DRUGS (2)
  1. SEROPHENE [Suspect]
     Indication: OVULATION INDUCTION
     Dosage: 100 MG, 1 IN 1 DAYS
     Dates: start: 20091201, end: 20090101
  2. ANTIDEPRESSANT (ANTIDEPRESSANTS) [Concomitant]

REACTIONS (1)
  - ERYTHEMA INFECTIOSUM [None]
